FAERS Safety Report 17599026 (Version 1)
Quarter: 2020Q1

REPORT INFORMATION
  Report Type: Spontaneous
  Country: US (occurrence: US)
  Receive Date: 20200330
  Receipt Date: 20200330
  Transmission Date: 20200409
  Serious: No
  Sender: FDA-Public Use
  Company Number: US-INDIVIOR US-INDV-123346-2020

PATIENT
  Age: 36 Year
  Sex: Male
  Weight: 117.91 kg

DRUGS (4)
  1. BUPRENORPHINE/NALOXONE TABLET GENERIC [Suspect]
     Active Substance: BUPRENORPHINE\NALOXONE
     Dosage: 4 MG DOSE; HALF OF A 8 MG TABLET EVERY 6 HOURS
     Route: 065
     Dates: start: 202001, end: 202001
  2. BUPRENORPHINE/NALOXONE TABLET GENERIC [Suspect]
     Active Substance: BUPRENORPHINE\NALOXONE
     Indication: DRUG WITHDRAWAL SYNDROME
     Dosage: 4 MG, EVERY 4 HOURS
     Route: 065
     Dates: start: 20200123, end: 20200123
  3. SUBLOCADE [Suspect]
     Active Substance: BUPRENORPHINE
     Indication: DRUG DEPENDENCE
     Dosage: 300 MILLIGRAM, QMO (FIRST INJECTION)
     Route: 058
     Dates: start: 20200120
  4. BUPRENORPHINE/NALOXONE TABLET GENERIC [Suspect]
     Active Substance: BUPRENORPHINE\NALOXONE
     Dosage: 4 MILLIGRAM, UNKNOWN
     Route: 065
     Dates: start: 202001

REACTIONS (3)
  - Drug withdrawal syndrome [Recovering/Resolving]
  - Wrong technique in product usage process [Unknown]
  - Inappropriate schedule of product administration [Unknown]

NARRATIVE: CASE EVENT DATE: 20200123
